FAERS Safety Report 9238673 (Version 1)
Quarter: 2012Q4

REPORT INFORMATION
  Report Type: Spontaneous
  Country: US (occurrence: None)
  Receive Date: 20121113
  Receipt Date: 20121113
  Transmission Date: 20130627
  Serious: No
  Sender: FDA-Public Use
  Company Number: PHEH2012US018007

PATIENT
  Sex: Female

DRUGS (2)
  1. ARCAPTA (INDACATEROL) UNKNOWN [Suspect]
  2. ARCAPTA (INDACATEROL) UNKNOWN [Suspect]

REACTIONS (1)
  - Dysphonia [None]
